FAERS Safety Report 18489123 (Version 1)
Quarter: 2020Q4

REPORT INFORMATION
  Report Type: Spontaneous
  Country: JP (occurrence: JP)
  Receive Date: 20201111
  Receipt Date: 20201111
  Transmission Date: 20210114
  Serious: Yes (Death)
  Sender: FDA-Public Use
  Company Number: JP-JNJFOC-20200216252

PATIENT
  Age: 77 Year
  Sex: Male

DRUGS (12)
  1. INSULIN GLARGINEGENETICAL RECOMBINATION) [Concomitant]
     Dosage: 2 INTERNATIONAL UNIT, QD
     Route: 058
  2. MAGNESIUM OXIDE. [Concomitant]
     Active Substance: MAGNESIUM OXIDE
     Indication: CONSTIPATION
     Dosage: 660 MILLIGRAM, TID
     Route: 048
  3. INSULIN GLARGINEGENETICAL RECOMBINATION) [Concomitant]
     Indication: TYPE 2 DIABETES MELLITUS
     Dosage: 14 INTERNATIONAL UNIT, QD
     Route: 058
  4. METGLUCO [Concomitant]
     Active Substance: METFORMIN HYDROCHLORIDE
     Indication: DIABETES MELLITUS
     Dosage: 500 MILLIGRAM, TID
     Route: 048
  5. TELMISARTAN. [Concomitant]
     Active Substance: TELMISARTAN
     Indication: HYPERTENSION
     Dosage: 80 MILLIGRAM, QD
     Route: 048
  6. SENNOSIDE A+B [Concomitant]
     Active Substance: SENNOSIDES A AND B
     Indication: CONSTIPATION
     Dosage: 24 MILLIGRAM, QD
     Route: 048
  7. GLACTIV [Concomitant]
     Active Substance: SITAGLIPTIN
     Indication: DIABETES MELLITUS
     Dosage: 100 MILLIGRAM, QD
     Route: 048
  8. PIOGLITAZONE. [Concomitant]
     Active Substance: PIOGLITAZONE
     Indication: DIABETES MELLITUS
     Dosage: 15 MILLIGRAM, QD
     Route: 048
  9. SEIBULE [Concomitant]
     Active Substance: MIGLITOL
     Indication: DIABETES MELLITUS
     Dosage: 50 MILLIGRAM, TID
     Route: 048
  10. BAYASPIRIN [Concomitant]
     Active Substance: ASPIRIN
     Indication: MYOCARDIAL INFARCTION
     Dosage: 100 MILLIGRAM, QD
     Route: 048
  11. AMLODIN [Concomitant]
     Active Substance: AMLODIPINE BESYLATE
     Indication: HYPERTENSION
     Dosage: 5 MILLIGRAM, QD
     Route: 048
  12. CANAGLIFLOZIN [Suspect]
     Active Substance: CANAGLIFLOZIN
     Indication: TYPE 2 DIABETES MELLITUS
     Dosage: 100 MILLIGRAM, QD
     Route: 048

REACTIONS (4)
  - Diabetic ketoacidosis [Fatal]
  - Pneumonia [Fatal]
  - Pulmonary artery thrombosis [Fatal]
  - Septic shock [Fatal]

NARRATIVE: CASE EVENT DATE: 20190814
